FAERS Safety Report 6399564-0 (Version None)
Quarter: 2009Q4

REPORT INFORMATION
  Report Type: 
  Country: None (occurrence: None)
  Receive Date: 20091013
  Receipt Date: 20091013
  Transmission Date: 20100525
  Serious: Yes (Other)
  Sender: FDA-Public Use
  Company Number: None

PATIENT
  Sex: Female
  Weight: 65.7716 kg

DRUGS (4)
  1. BONIVA [Suspect]
     Indication: OSTEOPOROSIS
     Dosage: 3MG Q 3MOS IV (FOR ONE YR)
     Route: 042
     Dates: start: 20081003
  2. BONIVA [Suspect]
     Indication: OSTEOPOROSIS
     Dosage: 3MG Q 3MOS IV (FOR ONE YR)
     Route: 042
     Dates: start: 20090108
  3. BONIVA [Suspect]
     Indication: OSTEOPOROSIS
     Dosage: 3MG Q 3MOS IV (FOR ONE YR)
     Route: 042
     Dates: start: 20090413
  4. BONIVA [Suspect]
     Indication: OSTEOPOROSIS
     Dosage: 3MG Q 3MOS IV (FOR ONE YR)
     Route: 042
     Dates: start: 20090715

REACTIONS (2)
  - BONE NEOPLASM [None]
  - JAW DISORDER [None]
